FAERS Safety Report 7542567-0 (Version None)
Quarter: 2011Q2

REPORT INFORMATION
  Report Type: 
  Country: None (occurrence: None)
  Receive Date: 20110613
  Receipt Date: 20110606
  Transmission Date: 20111010
  Serious: Yes (Death, Hospitalization)
  Sender: FDA-Public Use
  Company Number: FR-ROCHE-695027

PATIENT
  Age: 39 Year
  Sex: Female

DRUGS (16)
  1. RITUXAN [Suspect]
     Indication: POLYMYOSITIS
     Route: 042
     Dates: start: 20050501
  2. AZATHIOPRINE SODIUM [Suspect]
     Indication: POLYMYOSITIS
     Route: 065
     Dates: start: 20021101, end: 20050201
  3. PREDNISONE [Concomitant]
     Dates: start: 20011201
  4. PREDNISONE [Concomitant]
     Dates: start: 20070501
  5. PREDNISONE [Concomitant]
     Dates: start: 20070901
  6. RITUXAN [Suspect]
     Route: 042
     Dates: start: 20060301
  7. PREDNISONE [Concomitant]
     Dates: start: 20020601
  8. CYCLOSPORINE [Suspect]
     Indication: POLYMYOSITIS
     Route: 065
     Dates: start: 20060801
  9. PREDNISONE [Concomitant]
     Dates: start: 20060301, end: 20070501
  10. METHOTREXATE [Suspect]
     Indication: POLYMYOSITIS
     Route: 065
     Dates: start: 20011201, end: 20021101
  11. MYCOPHENOLATE MEFETIL [Suspect]
     Indication: POLYMYOSITIS
     Route: 065
  12. RITUXAN [Suspect]
     Route: 042
     Dates: start: 20070501
  13. PREDNISONE [Concomitant]
     Indication: POLYMYOSITIS
     Dates: start: 20011001
  14. PREDNISONE [Concomitant]
     Dates: start: 20030701
  15. RITUXAN [Suspect]
     Dosage: FORM: INFUSION
     Route: 042
     Dates: start: 20090101
  16. RITUXAN [Suspect]
     Route: 042

REACTIONS (3)
  - DRUG INEFFECTIVE [None]
  - PNEUMONIA ASPIRATION [None]
  - PROGRESSIVE MULTIFOCAL LEUKOENCEPHALOPATHY [None]
